FAERS Safety Report 7044242-8 (Version None)
Quarter: 2010Q4

REPORT INFORMATION
  Report Type: 
  Country: None (occurrence: None)
  Receive Date: 20101014
  Receipt Date: 20101007
  Transmission Date: 20110411
  Serious: Yes (Other)
  Sender: FDA-Public Use
  Company Number: US-BIOGENIDEC-2010BI033544

PATIENT
  Age: 23 Year
  Sex: Female

DRUGS (3)
  1. AVONEX [Suspect]
     Indication: MULTIPLE SCLEROSIS
     Route: 030
     Dates: start: 20050630, end: 20060101
  2. AVONEX [Suspect]
     Route: 030
     Dates: start: 20060101, end: 20060901
  3. AVONEX [Suspect]
     Route: 030
     Dates: start: 20070601, end: 20100907

REACTIONS (1)
  - ABORTION SPONTANEOUS [None]
